FAERS Safety Report 6996754-0 (Version None)
Quarter: 2010Q3

REPORT INFORMATION
  Report Type: 
  Country: None (occurrence: None)
  Receive Date: 20100918
  Receipt Date: 20090715
  Transmission Date: 20110219
  Serious: No
  Sender: FDA-Public Use
  Company Number: US-WYE-H10165609

PATIENT
  Sex: Male
  Weight: 99.88 kg

DRUGS (6)
  1. EFFEXOR XR [Suspect]
     Indication: DEPRESSION
     Route: 048
     Dates: start: 20070101, end: 20090101
  2. EFFEXOR XR [Suspect]
     Route: 048
     Dates: start: 20090101, end: 20090701
  3. FLURAZEPAM [Concomitant]
  4. SIMVASTATIN [Concomitant]
  5. MORPHINE SULFATE [Concomitant]
  6. PERCOCET [Concomitant]

REACTIONS (3)
  - DEPRESSION [None]
  - DRUG EFFECT DECREASED [None]
  - TEARFULNESS [None]
